FAERS Safety Report 10037274 (Version 1)
Quarter: 2014Q1

REPORT INFORMATION
  Report Type: Spontaneous
  Country: DE (occurrence: DE)
  Receive Date: 20140326
  Receipt Date: 20140326
  Transmission Date: 20141002
  Serious: Yes (Hospitalization)
  Sender: FDA-Public Use
  Company Number: DE-SUN PHARMACEUTICAL INDUSTRIES LTD-2014SUN00652

PATIENT
  Age: 41 Year
  Sex: Female

DRUGS (4)
  1. GEMCITABINE INJECTION [Suspect]
     Indication: LUNG ADENOCARCINOMA
     Dosage: 7 CYCLES
     Route: 065
  2. LEVETIRACETAM [Suspect]
     Indication: CONVULSION
     Dosage: 4 G, UNK
     Route: 042
  3. CISPLATIN [Suspect]
     Indication: LUNG ADENOCARCINOMA
     Dosage: 7 CYCLES
     Route: 065
  4. BEVACIZUMAB [Suspect]
     Indication: LUNG ADENOCARCINOMA
     Dosage: 7 CYCLES
     Route: 065

REACTIONS (2)
  - Posterior reversible encephalopathy syndrome [Recovering/Resolving]
  - Drug ineffective [Recovered/Resolved]
